FAERS Safety Report 8622154-3 (Version None)
Quarter: 2012Q3

REPORT INFORMATION
  Report Type: 
  Country: None (occurrence: None)
  Receive Date: 20120826
  Receipt Date: 20120820
  Transmission Date: 20120928
  Serious: No
  Sender: FDA-Public Use
  Company Number: US-B.I. PHARMACEUTICALS,INC./RIDGEFIELD-2012-BP-20227BP

PATIENT
  Age: 72 Year
  Sex: Male

DRUGS (3)
  1. PLAVIX [Concomitant]
  2. SPIRIVA [Suspect]
     Dosage: 18 MCG
     Route: 055
  3. ASPIRIN [Concomitant]

REACTIONS (4)
  - DEHYDRATION [None]
  - COUGH [None]
  - LUNG NEOPLASM [None]
  - HAEMOPTYSIS [None]
